FAERS Safety Report 16054913 (Version 1)
Quarter: 2019Q1

REPORT INFORMATION
  Report Type: Spontaneous
  Country: FR (occurrence: FR)
  Receive Date: 20190310
  Receipt Date: 20190310
  Transmission Date: 20190418
  Serious: Yes (Other)
  Sender: FDA-Public Use
  Company Number: FR-ACCORD-111908

PATIENT
  Age: 69 Year
  Sex: Male
  Weight: 70 kg

DRUGS (1)
  1. LEVETIRACETAM. [Suspect]
     Active Substance: LEVETIRACETAM
     Indication: EPILEPSY
     Route: 048
     Dates: start: 20180608

REACTIONS (2)
  - Hepatocellular injury [Recovering/Resolving]
  - Cholestasis [Unknown]

NARRATIVE: CASE EVENT DATE: 20180618
